FAERS Safety Report 5824013-8 (Version None)
Quarter: 2008Q3

REPORT INFORMATION
  Report Type: 
  Country: None (occurrence: None)
  Receive Date: 20080728
  Receipt Date: 20080717
  Transmission Date: 20090109
  Serious: Yes (Hospitalization)
  Sender: FDA-Public Use
  Company Number: FR-JNJFOC-20080704125

PATIENT
  Sex: Male

DRUGS (8)
  1. RISPERDAL [Suspect]
     Indication: PSYCHOTIC DISORDER
     Route: 048
  2. ALDACTONE [Concomitant]
     Route: 048
  3. TORSEMIDE [Concomitant]
     Route: 048
  4. BECOZYME [Concomitant]
     Indication: ULCER
     Route: 048
  5. OMEPRAZOLE [Concomitant]
     Indication: ULCER
  6. DUPHALAC [Concomitant]
     Indication: CONSTIPATION
     Route: 048
  7. FOLIC ACID [Concomitant]
     Route: 048
  8. PRAZINE [Concomitant]

REACTIONS (4)
  - CONFUSIONAL STATE [None]
  - HYPERTONIA [None]
  - MIOSIS [None]
  - SOMNOLENCE [None]
